FAERS Safety Report 20038537 (Version 3)
Quarter: 2021Q4

REPORT INFORMATION
  Report Type: Report from Study
  Country: DO (occurrence: DO)
  Receive Date: 20211105
  Receipt Date: 20211222
  Transmission Date: 20220303
  Serious: Yes (Death, Hospitalization, Other)
  Sender: FDA-Public Use
  Company Number: DO-NOVARTISPH-NVSC2021DO251137

PATIENT
  Age: 57 Year
  Sex: Female

DRUGS (1)
  1. KISQALI [Suspect]
     Active Substance: RIBOCICLIB
     Indication: Breast cancer
     Dosage: 600 MG, QD
     Route: 048
     Dates: start: 20210812

REACTIONS (11)
  - Death [Fatal]
  - Colitis [Unknown]
  - Metastases to bone [Unknown]
  - Metastases to liver [Unknown]
  - Fluid retention [Unknown]
  - Blood pressure increased [Unknown]
  - Pain [Unknown]
  - Blood bilirubin increased [Unknown]
  - Fatigue [Unknown]
  - Speech disorder [Unknown]
  - Thermal burn [Unknown]

NARRATIVE: CASE EVENT DATE: 20211217
